FAERS Safety Report 6587171-6 (Version None)
Quarter: 2010Q1

REPORT INFORMATION
  Report Type: 
  Country: None (occurrence: None)
  Receive Date: 20100217
  Receipt Date: 20090729
  Transmission Date: 20100710
  Serious: Yes (Other)
  Sender: FDA-Public Use
  Company Number: US-ALLERGAN-0906147US

PATIENT
  Age: 91 Year
  Sex: Female
  Weight: 71.655 kg

DRUGS (19)
  1. BOTOX [Suspect]
     Indication: TORTICOLLIS
     Dosage: 200 UNITS, SINGLE
     Route: 030
     Dates: start: 20090430, end: 20090430
  2. ACTONEL [Concomitant]
     Indication: OSTEOPOROSIS
     Dosage: 75 MG, QMONTH
  3. NEXIUM [Concomitant]
     Dosage: 40 MG, QD
  4. TEKTURNA [Concomitant]
     Dosage: 150 MG, QD
  5. ATIVAN [Concomitant]
  6. CRESTOR [Concomitant]
     Dosage: 10 MG, QD
  7. NORVASC [Concomitant]
     Indication: HYPERTENSION
     Dosage: 10 MG, QD
  8. LYRICA [Concomitant]
     Indication: NEUROPATHY PERIPHERAL
  9. TYLENOL P.M. [Concomitant]
     Dosage: UNK, QHS
  10. SYNTHROID [Concomitant]
     Indication: HYPOTHYROIDISM
     Dosage: 125 UG, UNK
  11. LOVAZA [Concomitant]
     Dosage: UNK, TID
  12. INDAPAMIDE [Concomitant]
     Indication: FLUID RETENTION
     Dosage: 2.5 MG, UNK
  13. OSCAL [Concomitant]
     Indication: VITAMIN SUPPLEMENTATION
  14. GLUCOSAMINE + CHONDROITIN [Concomitant]
  15. VITAMIN E+C [Concomitant]
  16. ASPIRIN [Concomitant]
     Dosage: 81 MG, UNK
  17. LUTEIN [Concomitant]
     Route: 047
  18. TENORMIN [Concomitant]
     Dosage: 25 MG, BID
  19. MIRAPEX [Concomitant]
     Indication: RESTLESS LEGS SYNDROME
     Dosage: 0.5 MG, BID

REACTIONS (4)
  - DRUG ADMINISTERED AT INAPPROPRIATE SITE [None]
  - DYSPHAGIA [None]
  - INCORRECT DOSE ADMINISTERED [None]
  - MUSCULAR WEAKNESS [None]
